FAERS Safety Report 22293462 (Version 2)
Quarter: 2024Q2

REPORT INFORMATION
  Report Type: Spontaneous
  Country: DK (occurrence: DK)
  Receive Date: 20230508
  Receipt Date: 20240528
  Transmission Date: 20240716
  Serious: Yes (Other)
  Sender: FDA-Public Use
  Company Number: DK-AUROBINDO-AUR-APL-2023-034681

PATIENT
  Age: 4 Decade
  Sex: Male

DRUGS (2)
  1. SERTRALINE [Interacting]
     Active Substance: SERTRALINE HYDROCHLORIDE
     Indication: Depression
     Dosage: 150 MILLIGRAM, DAILY
     Route: 065
  2. TRAMADOL [Interacting]
     Active Substance: TRAMADOL\TRAMADOL HYDROCHLORIDE
     Indication: Pain in jaw
     Dosage: 50 MILLIGRAM, FOUR TIMES/DAY
     Route: 065

REACTIONS (4)
  - Serotonin syndrome [Unknown]
  - Hypophagia [Unknown]
  - General physical health deterioration [Unknown]
  - Drug interaction [Unknown]
